FAERS Safety Report 14307562 (Version 1)
Quarter: 2017Q4

REPORT INFORMATION
  Report Type: Report from Study
  Country: US (occurrence: US)
  Receive Date: 20171220
  Receipt Date: 20171220
  Transmission Date: 20180321
  Serious: Yes (Other)
  Sender: FDA-Public Use
  Company Number: US-AMGEN-USASL2017186872

PATIENT
  Age: 80 Year
  Sex: Female

DRUGS (1)
  1. REPATHA [Suspect]
     Active Substance: EVOLOCUMAB
     Indication: PRODUCT USED FOR UNKNOWN INDICATION
     Dosage: UNK
     Route: 065
     Dates: start: 201706

REACTIONS (4)
  - Pneumonia [Unknown]
  - Back pain [Unknown]
  - Nasopharyngitis [Unknown]
  - Sleep disorder due to general medical condition, insomnia type [Unknown]

NARRATIVE: CASE EVENT DATE: 201712
